FAERS Safety Report 7380864-2 (Version None)
Quarter: 2011Q1

REPORT INFORMATION
  Report Type: 
  Country: None (occurrence: None)
  Receive Date: 20110329
  Receipt Date: 20110315
  Transmission Date: 20110831
  Serious: Yes (Hospitalization)
  Sender: FDA-Public Use
  Company Number: PHHY2011NL20997

PATIENT
  Age: 14 Year
  Sex: Male

DRUGS (1)
  1. RITALIN [Suspect]
     Dosage: UNK UKN, UNK

REACTIONS (7)
  - HEART RATE INCREASED [None]
  - POLYDIPSIA [None]
  - HEADACHE [None]
  - ARTHRALGIA [None]
  - SYNCOPE [None]
  - FATIGUE [None]
  - SOMNOLENCE [None]
